FAERS Safety Report 9575009 (Version 3)
Quarter: 2015Q2

REPORT INFORMATION
  Report Type: Spontaneous
  Country: GB (occurrence: GB)
  Receive Date: 20131001
  Receipt Date: 20150512
  Transmission Date: 20150821
  Serious: Yes (Hospitalization)
  Sender: FDA-Public Use
  Company Number: PHHY2013GB107018

PATIENT
  Age: 45 Year
  Sex: Male
  Weight: 44 kg

DRUGS (6)
  1. LANSOPRAZOLE. [Suspect]
     Active Substance: LANSOPRAZOLE
     Indication: PRODUCT USED FOR UNKNOWN INDICATION
     Dosage: 30 MG, QD
     Route: 065
  2. FERROUS SULFATE [Interacting]
     Active Substance: FERROUS SULFATE\FERROUS SULFATE, DRIED
     Indication: HAEMOGLOBIN DECREASED
     Dosage: 200 MG, TID
     Route: 065
  3. AMOXICILLIN-CLAVULANIC ACID [Interacting]
     Active Substance: AMOXICILLIN\CLAVULANIC ACID
     Indication: ANTIBIOTIC THERAPY
     Route: 065
  4. SELENIUM [Concomitant]
     Active Substance: SELENIUM
     Indication: SELENIUM DEFICIENCY
     Dosage: 100 UG, QD
     Route: 065
  5. MAGNASPARTATE [Concomitant]
     Indication: MINERAL SUPPLEMENTATION
     Route: 065
  6. CIPROFLOXACIN. [Interacting]
     Active Substance: CIPROFLOXACIN
     Indication: ANTIBIOTIC THERAPY

REACTIONS (6)
  - Erythema [Unknown]
  - Impaired healing [Unknown]
  - Alopecia [Unknown]
  - Hypozincaemia [Unknown]
  - Drug effect incomplete [Unknown]
  - Malabsorption [Unknown]
